FAERS Safety Report 13395454 (Version 2)
Quarter: 2017Q2

REPORT INFORMATION
  Report Type: Report from Study
  Country: UA (occurrence: UA)
  Receive Date: 20170403
  Receipt Date: 20170602
  Transmission Date: 20170830
  Serious: Yes (Hospitalization)
  Sender: FDA-Public Use
  Company Number: UA-ROCHE-1899124

PATIENT
  Age: 52 Year
  Sex: Female
  Weight: 54 kg

DRUGS (29)
  1. DIPHENHYDRAMINE. [Concomitant]
     Active Substance: DIPHENHYDRAMINE
     Route: 065
     Dates: start: 20121211, end: 20121211
  2. PLACEBO [Suspect]
     Active Substance: UNSPECIFIED INGREDIENT
     Route: 042
     Dates: start: 20130529, end: 20130529
  3. PLACEBO [Suspect]
     Active Substance: UNSPECIFIED INGREDIENT
     Route: 042
     Dates: start: 20131029, end: 20131029
  4. PLACEBO [Suspect]
     Active Substance: UNSPECIFIED INGREDIENT
     Route: 042
     Dates: start: 20141013, end: 20141013
  5. PLACEBO [Suspect]
     Active Substance: UNSPECIFIED INGREDIENT
     Route: 042
     Dates: start: 20150317, end: 20150317
  6. OCRELIZUMAB [Suspect]
     Active Substance: OCRELIZUMAB
     Route: 042
     Dates: start: 20151221, end: 20151221
  7. OCRELIZUMAB [Suspect]
     Active Substance: OCRELIZUMAB
     Route: 042
     Dates: start: 20160525, end: 20160525
  8. PLACEBO [Suspect]
     Active Substance: UNSPECIFIED INGREDIENT
     Route: 042
     Dates: start: 20150915, end: 20150915
  9. OCRELIZUMAB [Suspect]
     Active Substance: OCRELIZUMAB
     Route: 042
     Dates: start: 20160607, end: 20160607
  10. OCRELIZUMAB [Suspect]
     Active Substance: OCRELIZUMAB
     Route: 042
     Dates: start: 20161107, end: 20161107
  11. DECATYLEN (UKRAINE) [Concomitant]
     Indication: LARYNGITIS
     Route: 065
     Dates: start: 20160602, end: 20160610
  12. PLACEBO [Suspect]
     Active Substance: UNSPECIFIED INGREDIENT
     Route: 042
     Dates: start: 20140428, end: 20140428
  13. OCRELIZUMAB [Suspect]
     Active Substance: OCRELIZUMAB
     Indication: PRIMARY PROGRESSIVE MULTIPLE SCLEROSIS
     Route: 042
     Dates: start: 20151208, end: 20151208
  14. PARACETAMOL [Concomitant]
     Active Substance: ACETAMINOPHEN
     Indication: LARYNGITIS
     Dosage: ACUTE LARYNGITIS
     Route: 065
     Dates: start: 20160602, end: 20160606
  15. PLACEBO [Suspect]
     Active Substance: UNSPECIFIED INGREDIENT
     Route: 042
     Dates: start: 20131112, end: 20131112
  16. PLACEBO [Suspect]
     Active Substance: UNSPECIFIED INGREDIENT
     Route: 042
     Dates: start: 20150902, end: 20150902
  17. OCRELIZUMAB [Suspect]
     Active Substance: OCRELIZUMAB
     Dosage: WITHDREW FROM STUDY ON 25/APR/2017
     Route: 042
     Dates: start: 20161121, end: 20161121
  18. DIPHENHYDRAMINE. [Concomitant]
     Active Substance: DIPHENHYDRAMINE
     Dosage: PREMEDICATION - ADMINISTERED ON SAME DATES AS BLINDED AND OPEN LABEL OCRELIZUMAB
     Route: 065
     Dates: start: 20130514
  19. PLACEBO [Suspect]
     Active Substance: UNSPECIFIED INGREDIENT
     Route: 042
     Dates: start: 20140930, end: 20140930
  20. DIPHENHYDRAMINE. [Concomitant]
     Active Substance: DIPHENHYDRAMINE
     Indication: PREMEDICATION
     Route: 065
     Dates: start: 20121126, end: 20121126
  21. SUPRASTIN [Concomitant]
     Active Substance: CHLOROPYRAMINE HYDROCHLORIDE
     Indication: RASH
     Route: 065
     Dates: start: 20151208, end: 20151208
  22. PLACEBO [Suspect]
     Active Substance: UNSPECIFIED INGREDIENT
     Route: 042
     Dates: start: 20150401, end: 20150401
  23. PLACEBO [Suspect]
     Active Substance: UNSPECIFIED INGREDIENT
     Route: 042
     Dates: start: 20121126, end: 20121126
  24. METHYLPREDNISOLONE. [Concomitant]
     Active Substance: METHYLPREDNISOLONE
     Indication: PREMEDICATION
     Dosage: ADMINISTERED ON SAME DATES AS BLINDED AND OPEN LABEL OCRELIZUMAB
     Route: 065
     Dates: start: 20121126
  25. PARACETAMOL [Concomitant]
     Active Substance: ACETAMINOPHEN
     Indication: PREMEDICATION
     Dosage: ADMINISTERED ON SAME DATES AS BLINDED AND OPEN LABEL OCRELIZUMAB
     Route: 065
     Dates: start: 20121126
  26. SUPRASTIN [Concomitant]
     Active Substance: CHLOROPYRAMINE HYDROCHLORIDE
     Indication: URTICARIA
  27. PLACEBO [Suspect]
     Active Substance: UNSPECIFIED INGREDIENT
     Indication: PRIMARY PROGRESSIVE MULTIPLE SCLEROSIS
     Route: 042
     Dates: start: 20121211, end: 20121211
  28. PLACEBO [Suspect]
     Active Substance: UNSPECIFIED INGREDIENT
     Route: 042
     Dates: start: 20140414, end: 20140414
  29. PLACEBO [Suspect]
     Active Substance: UNSPECIFIED INGREDIENT
     Route: 042
     Dates: start: 20130514, end: 20130514

REACTIONS (1)
  - Pyelocystitis [Recovered/Resolved]

NARRATIVE: CASE EVENT DATE: 20170221
